FAERS Safety Report 22998385 (Version 5)
Quarter: 2024Q2

REPORT INFORMATION
  Report Type: Report from Study
  Country: JP (occurrence: JP)
  Receive Date: 20230928
  Receipt Date: 20240513
  Transmission Date: 20240715
  Serious: Yes (Other)
  Sender: FDA-Public Use
  Company Number: JP-002147023-NVSJ2023JP014103

PATIENT
  Age: 19 Year
  Sex: Female
  Weight: 48.3 kg

DRUGS (45)
  1. ILARIS [Suspect]
     Active Substance: CANAKINUMAB
     Indication: Still^s disease
     Dosage: 195 MG
     Route: 058
     Dates: start: 20220329
  2. ILARIS [Suspect]
     Active Substance: CANAKINUMAB
     Dosage: 210 MG
     Route: 058
     Dates: start: 20220428
  3. ILARIS [Suspect]
     Active Substance: CANAKINUMAB
     Dosage: 225 MG
     Route: 058
     Dates: start: 20220524
  4. ILARIS [Suspect]
     Active Substance: CANAKINUMAB
     Dosage: 225 MG
     Route: 058
     Dates: start: 20220621
  5. ILARIS [Suspect]
     Active Substance: CANAKINUMAB
     Dosage: 225 MG
     Route: 058
     Dates: start: 20220712
  6. ILARIS [Suspect]
     Active Substance: CANAKINUMAB
     Dosage: 225 MG
     Route: 058
     Dates: start: 20220818
  7. ILARIS [Suspect]
     Active Substance: CANAKINUMAB
     Dosage: 225 MG
     Route: 058
     Dates: start: 20220913
  8. ILARIS [Suspect]
     Active Substance: CANAKINUMAB
     Dosage: 225 MG
     Route: 058
     Dates: start: 20221011
  9. ILARIS [Suspect]
     Active Substance: CANAKINUMAB
     Dosage: 225 MG
     Route: 058
     Dates: start: 20221102
  10. ILARIS [Suspect]
     Active Substance: CANAKINUMAB
     Dosage: 225 MG
     Route: 058
     Dates: start: 20221130
  11. ILARIS [Suspect]
     Active Substance: CANAKINUMAB
     Dosage: 225 MG
     Route: 058
     Dates: start: 20221227
  12. ILARIS [Suspect]
     Active Substance: CANAKINUMAB
     Dosage: 240 MG
     Route: 058
     Dates: start: 20230125
  13. ILARIS [Suspect]
     Active Substance: CANAKINUMAB
     Dosage: 270 MG
     Route: 058
     Dates: start: 20230301
  14. ILARIS [Suspect]
     Active Substance: CANAKINUMAB
     Dosage: 270 MG
     Route: 058
     Dates: start: 20230329
  15. ILARIS [Suspect]
     Active Substance: CANAKINUMAB
     Dosage: 270 MG
     Route: 058
     Dates: start: 20230425
  16. ILARIS [Suspect]
     Active Substance: CANAKINUMAB
     Dosage: 270 MG
     Route: 058
     Dates: start: 20230523
  17. ILARIS [Suspect]
     Active Substance: CANAKINUMAB
     Dosage: 270 MG
     Route: 058
     Dates: start: 20230613
  18. ILARIS [Suspect]
     Active Substance: CANAKINUMAB
     Dosage: 270 MG
     Route: 058
     Dates: start: 20230719
  19. ILARIS [Suspect]
     Active Substance: CANAKINUMAB
     Dosage: 270 MG
     Route: 058
     Dates: start: 20230816
  20. ILARIS [Suspect]
     Active Substance: CANAKINUMAB
     Dosage: 270 MG
     Route: 058
     Dates: start: 20230921, end: 20230921
  21. PREDNISOLONE [Concomitant]
     Active Substance: PREDNISOLONE
     Indication: Still^s disease
     Dosage: 20 MG
     Route: 048
     Dates: start: 20220329, end: 20220411
  22. PREDNISOLONE [Concomitant]
     Active Substance: PREDNISOLONE
     Dosage: 15 MG
     Route: 048
     Dates: start: 20220412, end: 20220428
  23. PREDNISOLONE [Concomitant]
     Active Substance: PREDNISOLONE
     Dosage: 10 MG
     Route: 048
     Dates: start: 20220429, end: 20220512
  24. PREDNISOLONE [Concomitant]
     Active Substance: PREDNISOLONE
     Dosage: 8 MG
     Route: 048
     Dates: start: 20220513, end: 20220528
  25. PREDNISOLONE [Concomitant]
     Active Substance: PREDNISOLONE
     Dosage: 6 MG
     Route: 048
     Dates: start: 20220529, end: 20220621
  26. PREDNISOLONE [Concomitant]
     Active Substance: PREDNISOLONE
     Dosage: 5 MG
     Route: 048
     Dates: start: 20220622, end: 20220712
  27. PREDNISOLONE [Concomitant]
     Active Substance: PREDNISOLONE
     Dosage: 4 MG
     Route: 048
     Dates: start: 20220713, end: 20220818
  28. PREDNISOLONE [Concomitant]
     Active Substance: PREDNISOLONE
     Dosage: 3.5 MG
     Route: 048
     Dates: start: 20220819, end: 20221121
  29. PREDNISOLONE [Concomitant]
     Active Substance: PREDNISOLONE
     Dosage: 40 MG
     Route: 048
     Dates: start: 20221122, end: 20221130
  30. PREDNISOLONE [Concomitant]
     Active Substance: PREDNISOLONE
     Dosage: 30 MG
     Route: 048
     Dates: start: 20221201, end: 20221207
  31. PREDNISOLONE [Concomitant]
     Active Substance: PREDNISOLONE
     Dosage: 20 MG
     Route: 048
     Dates: start: 20221208, end: 20221214
  32. PREDNISOLONE [Concomitant]
     Active Substance: PREDNISOLONE
     Dosage: 15 MG
     Route: 048
     Dates: start: 20221215, end: 20221226
  33. PREDNISOLONE [Concomitant]
     Active Substance: PREDNISOLONE
     Dosage: 12.5 MG
     Route: 048
     Dates: start: 20221227, end: 20230102
  34. PREDNISOLONE [Concomitant]
     Active Substance: PREDNISOLONE
     Dosage: 10 MG
     Route: 048
     Dates: start: 20230103, end: 20230124
  35. PREDNISOLONE [Concomitant]
     Active Substance: PREDNISOLONE
     Dosage: 9 MG
     Route: 048
     Dates: start: 20230125, end: 20230228
  36. PREDNISOLONE [Concomitant]
     Active Substance: PREDNISOLONE
     Dosage: 8 MG
     Route: 048
     Dates: start: 20230301, end: 20230328
  37. PREDNISOLONE [Concomitant]
     Active Substance: PREDNISOLONE
     Dosage: 7.5 MG
     Route: 048
     Dates: start: 20230329, end: 20230424
  38. PREDNISOLONE [Concomitant]
     Active Substance: PREDNISOLONE
     Dosage: 7 MG
     Route: 048
     Dates: start: 20230425
  39. TACROLIMUS [Concomitant]
     Active Substance: TACROLIMUS
     Indication: Still^s disease
     Dosage: 3.5 MG
     Route: 048
     Dates: start: 20191015, end: 20220620
  40. TACROLIMUS [Concomitant]
     Active Substance: TACROLIMUS
     Dosage: 4 MG
     Route: 048
     Dates: start: 20220621
  41. METHOTREXATE [Concomitant]
     Active Substance: METHOTREXATE
     Indication: Still^s disease
     Dosage: 14 MG, QW
     Route: 048
     Dates: start: 20210901
  42. FOLIC ACID [Concomitant]
     Active Substance: FOLIC ACID
     Indication: Prophylaxis
     Dosage: 5 MG, QW
     Route: 048
     Dates: start: 20181128
  43. REBAMIPIDE [Concomitant]
     Active Substance: REBAMIPIDE
     Indication: Prophylaxis against gastrointestinal ulcer
     Dosage: 300 MG
     Route: 048
     Dates: start: 20181128
  44. ELDECALCITOL [Concomitant]
     Active Substance: ELDECALCITOL
     Indication: Osteoporosis prophylaxis
     Dosage: 0.75 UG
     Route: 048
     Dates: start: 20220326
  45. AZULFIDINE [Concomitant]
     Active Substance: SULFASALAZINE
     Indication: Still^s disease
     Dosage: 500 MG
     Route: 048
     Dates: start: 20230329, end: 20230523

REACTIONS (4)
  - Colitis ulcerative [Recovering/Resolving]
  - Lymphocyte count decreased [Recovering/Resolving]
  - Still^s disease [Recovering/Resolving]
  - Disease recurrence [Recovering/Resolving]

NARRATIVE: CASE EVENT DATE: 20220801
